FAERS Safety Report 4956437-5 (Version None)
Quarter: 2006Q1

REPORT INFORMATION
  Report Type: 
  Country: None (occurrence: None)
  Receive Date: 20060328
  Receipt Date: 20060328
  Transmission Date: 20060701
  Serious: No
  Sender: FDA-Public Use
  Company Number: None

PATIENT
  Sex: Female
  Weight: 45.3597 kg

DRUGS (1)
  1. ZOSYN [Suspect]
     Indication: APPENDICITIS
     Dates: start: 20021129, end: 20031221

REACTIONS (15)
  - ABDOMINAL PAIN [None]
  - ABDOMINAL PAIN UPPER [None]
  - ANGINA PECTORIS [None]
  - ANOREXIA [None]
  - CARDIAC DISORDER [None]
  - DIABETES MELLITUS [None]
  - DIARRHOEA [None]
  - GASTROINTESTINAL PAIN [None]
  - GASTROOESOPHAGEAL REFLUX DISEASE [None]
  - HEPATIC PAIN [None]
  - IATROGENIC INJURY [None]
  - INSOMNIA [None]
  - MALABSORPTION [None]
  - RENAL PAIN [None]
  - WEIGHT DECREASED [None]
